FAERS Safety Report 17072789 (Version 1)
Quarter: 2019Q4

REPORT INFORMATION
  Report Type: Report from Study
  Country: US (occurrence: US)
  Receive Date: 20191125
  Receipt Date: 20191125
  Transmission Date: 20200122
  Serious: Yes (Other)
  Sender: FDA-Public Use
  Company Number: US-MYLANLABS-2019M1045348

PATIENT
  Sex: Female

DRUGS (1)
  1. GLATIRAMER ACETATE INJECTION [Suspect]
     Active Substance: GLATIRAMER ACETATE
     Indication: RELAPSING-REMITTING MULTIPLE SCLEROSIS
     Dosage: 40 MILLIGRAM, 3XW
     Route: 058

REACTIONS (7)
  - Injection site pruritus [Unknown]
  - Injection site mass [Unknown]
  - Injection site pain [Recovered/Resolved]
  - Injection site swelling [Unknown]
  - Hypersensitivity [Unknown]
  - Heart rate decreased [Unknown]
  - Injection site erythema [Unknown]
